FAERS Safety Report 5968952-6 (Version None)
Quarter: 2008Q4

REPORT INFORMATION
  Report Type: 
  Country: None (occurrence: None)
  Receive Date: 20081126
  Receipt Date: 20081114
  Transmission Date: 20090506
  Serious: Yes (Other)
  Sender: FDA-Public Use
  Company Number: JP-ROCHE-585323

PATIENT
  Sex: Female
  Weight: 33 kg

DRUGS (6)
  1. XELODA [Suspect]
     Indication: COLON CANCER METASTATIC
     Dosage: DRUG RPTD AS XELODA 300, 600MG IN A.M, 900MG IN P.M 3 WEEKS ON  1 WEEK REST
     Route: 048
     Dates: start: 20080724
  2. PREDONINE [Suspect]
     Indication: INFLAMMATION
     Route: 048
     Dates: start: 20080620, end: 20080911
  3. PREDONINE [Suspect]
     Dosage: DOSE DECREASED
     Route: 048
     Dates: start: 20080912
  4. MUCOSTA [Concomitant]
     Route: 048
     Dates: start: 20080620
  5. MAGNESIUM OXIDE [Concomitant]
     Route: 048
     Dates: start: 20080807
  6. ZOMETA [Concomitant]
     Indication: HYPERCALCAEMIA
     Dosage: FORM RPTD AS IV (NOT OTHERWISE SPECIFIED)
     Route: 042
     Dates: start: 20080710

REACTIONS (3)
  - GENITAL HAEMORRHAGE [None]
  - SKIN EXFOLIATION [None]
  - STRABISMUS [None]
